FAERS Safety Report 14569511 (Version 2)
Quarter: 2018Q2

REPORT INFORMATION
  Report Type: Spontaneous
  Country: US (occurrence: US)
  Receive Date: 20180224
  Receipt Date: 20180511
  Transmission Date: 20180711
  Serious: No
  Sender: FDA-Public Use
  Company Number: US-ASTRAZENECA-2018SE21968

PATIENT
  Sex: Male
  Weight: 95.3 kg

DRUGS (2)
  1. EXENATIDE. [Suspect]
     Active Substance: EXENATIDE
     Route: 058
  2. BYDUREON [Suspect]
     Active Substance: EXENATIDE
     Indication: TYPE 2 DIABETES MELLITUS
     Route: 058

REACTIONS (2)
  - Product quality issue [Unknown]
  - Injection site discomfort [Recovered/Resolved]
